FAERS Safety Report 6541642-7 (Version None)
Quarter: 2010Q1

REPORT INFORMATION
  Report Type: 
  Country: None (occurrence: None)
  Receive Date: 20100119
  Receipt Date: 20100111
  Transmission Date: 20100710
  Serious: Yes (Hospitalization)
  Sender: FDA-Public Use
  Company Number: US-JNJFOC-20100104940

PATIENT
  Sex: Female

DRUGS (1)
  1. REMICADE [Suspect]
     Indication: PSORIATIC ARTHROPATHY
     Dosage: 4 INFUSIONS RECEIVED

REACTIONS (3)
  - ATRIAL FIBRILLATION [None]
  - PAIN IN EXTREMITY [None]
  - PULMONARY EMBOLISM [None]
